FAERS Safety Report 8805273 (Version 1)
Quarter: 2012Q4

REPORT INFORMATION
  Report Type: 
  Country: TR (occurrence: TR)
  Receive Date: 20120924
  Receipt Date: 20120924
  Transmission Date: 20130627
  Serious: Yes (Other)
  Sender: FDA-Public Use
  Company Number: PHHY2012TR081184

PATIENT
  Age: 35 Year
  Sex: Female

DRUGS (1)
  1. HYDROXYCHLOROQUINE [Suspect]
     Indication: LEUKOCYTOCLASTIC VASCULITIS
     Dosage: 400 mg, QD

REACTIONS (1)
  - Keratopathy [Recovered/Resolved]
